FAERS Safety Report 18771395 (Version 1)
Quarter: 2021Q1

REPORT INFORMATION
  Report Type: Spontaneous
  Country: US (occurrence: US)
  Receive Date: 20210121
  Receipt Date: 20210121
  Transmission Date: 20210419
  Serious: No
  Sender: FDA-Public Use
  Company Number: US-PERRIGO-20US000121

PATIENT
  Sex: Female

DRUGS (1)
  1. IBUPROFEN. [Suspect]
     Active Substance: IBUPROFEN
     Indication: PRODUCT USED FOR UNKNOWN INDICATION
     Dosage: UNKNOWN, UNKNOWN
     Route: 048
     Dates: start: 201912, end: 201912

REACTIONS (6)
  - Hypersensitivity [Unknown]
  - Dyspnoea [Unknown]
  - Nervous system disorder [Unknown]
  - Eye swelling [Unknown]
  - Bronchospasm [Unknown]
  - Secretion discharge [Unknown]

NARRATIVE: CASE EVENT DATE: 201912
